FAERS Safety Report 5103017-7 (Version None)
Quarter: 2006Q3

REPORT INFORMATION
  Report Type: 
  Country: None (occurrence: None)
  Receive Date: 20060908
  Receipt Date: 20060823
  Transmission Date: 20061208
  Serious: Yes (Hospitalization)
  Sender: FDA-Public Use
  Company Number: PAR_0718_2006

PATIENT
  Age: 70 Year
  Sex: Male

DRUGS (2)
  1. IBUPROFEN [Suspect]
     Indication: ARTHRALGIA
     Dosage: DF
  2. KETOROLAC TROMETHAMINE [Suspect]
     Dosage: DF

REACTIONS (3)
  - ANGIOTENSIN CONVERTING ENZYME INCREASED [None]
  - INTERSTITIAL LUNG DISEASE [None]
  - MENINGITIS ASEPTIC [None]
